FAERS Safety Report 9216399 (Version 1)
Quarter: 2013Q2

REPORT INFORMATION
  Report Type: Spontaneous
  Country: US (occurrence: US)
  Receive Date: 20130408
  Receipt Date: 20130408
  Transmission Date: 20140414
  Serious: Yes (Death, Other)
  Sender: FDA-Public Use
  Company Number: PHEH2013US003653

PATIENT
  Age: 52 Year
  Sex: Male
  Weight: 83.27 kg

DRUGS (2)
  1. ZOMETA [Suspect]
     Indication: METASTASES TO BONE
     Dosage: UNK UKN, UNK
     Dates: start: 201010, end: 201103
  2. LUPRON [Suspect]
     Dosage: UNK UKN, UNK
     Dates: start: 20101206, end: 201103

REACTIONS (3)
  - Death [Fatal]
  - Metastases to bone [Unknown]
  - Malignant neoplasm progression [Unknown]
